FAERS Safety Report 25300627 (Version 2)
Quarter: 2025Q2

REPORT INFORMATION
  Report Type: Spontaneous
  Country: JP (occurrence: JP)
  Receive Date: 20250512
  Receipt Date: 20250602
  Transmission Date: 20250717
  Serious: Yes (Other)
  Sender: PFIZER
  Company Number: JP-ONO-2025JP007973

PATIENT
  Age: 93 Year
  Sex: Female

DRUGS (5)
  1. BRAFTOVI [Suspect]
     Active Substance: ENCORAFENIB
     Indication: Thyroid cancer
     Route: 048
     Dates: start: 20241226
  2. BRAFTOVI [Suspect]
     Active Substance: ENCORAFENIB
     Route: 048
     Dates: start: 20250415, end: 20250415
  3. MEKTOVI [Suspect]
     Active Substance: BINIMETINIB
     Indication: Thyroid cancer
     Route: 048
     Dates: start: 20241226
  4. MEKTOVI [Suspect]
     Active Substance: BINIMETINIB
     Route: 048
     Dates: start: 20250415, end: 20250415
  5. CALONAL [Concomitant]
     Active Substance: ACETAMINOPHEN
     Route: 065

REACTIONS (2)
  - Hypothyroidism [Recovered/Resolved]
  - Off label use [Unknown]

NARRATIVE: CASE EVENT DATE: 20241226
